FAERS Safety Report 5105202-7 (Version None)
Quarter: 2006Q3

REPORT INFORMATION
  Report Type: 
  Country: None (occurrence: None)
  Receive Date: 20060911
  Receipt Date: 20060822
  Transmission Date: 20061208
  Serious: Yes (Hospitalization)
  Sender: FDA-Public Use
  Company Number: US200607004544

PATIENT
  Age: 46 Year
  Sex: Female

DRUGS (3)
  1. CYMBALTA [Suspect]
     Indication: DEPRESSION
     Dosage: 120 MG; SEE IMAGE
  2. RISPERIDONE [Concomitant]
  3. TRILEPTAL [Concomitant]

REACTIONS (3)
  - BIPOLAR I DISORDER [None]
  - CONDITION AGGRAVATED [None]
  - DEPRESSION [None]
